FAERS Safety Report 5989497-3 (Version None)
Quarter: 2008Q4

REPORT INFORMATION
  Report Type: 
  Country: None (occurrence: None)
  Receive Date: 20081208
  Receipt Date: 20081201
  Transmission Date: 20090506
  Serious: No
  Sender: FDA-Public Use
  Company Number: 2008SP022260

PATIENT
  Age: 60 Year
  Sex: Female

DRUGS (2)
  1. PEG-INTRON [Suspect]
     Indication: HEPATITIS C
     Dosage: 120 MCG;
  2. REBETOL [Suspect]
     Indication: HEPATITIS C
     Dosage: 600 MG;BID

REACTIONS (1)
  - PLATELET COUNT DECREASED [None]
